FAERS Safety Report 16965310 (Version 1)
Quarter: 2019Q4

REPORT INFORMATION
  Report Type: Spontaneous
  Country: SE (occurrence: SE)
  Receive Date: 20191028
  Receipt Date: 20191028
  Transmission Date: 20200122
  Serious: Yes (Death, Other)
  Sender: FDA-Public Use
  Company Number: SE-SCIEGEN PHARMACEUTICALS INC-2019SCILIT00307

PATIENT
  Age: 37 Year
  Sex: Male

DRUGS (4)
  1. ALCOHOL. [Interacting]
     Active Substance: ALCOHOL
  2. ANGIOTENSIN CONVERTING ENZYME INHIBITORS [Suspect]
     Active Substance: UNSPECIFIED INGREDIENT
  3. METFORMIN HYDROCHLORIDETABLETS [Suspect]
     Active Substance: METFORMIN HYDROCHLORIDE
  4. ANGIOTENSIN CONVERTING ENZYME INHIBITORS [Interacting]
     Active Substance: UNSPECIFIED INGREDIENT

REACTIONS (4)
  - Alcohol interaction [Unknown]
  - Completed suicide [Fatal]
  - Toxicity to various agents [Fatal]
  - Drug interaction [Unknown]
